FAERS Safety Report 5909661-9 (Version None)
Quarter: 2008Q4

REPORT INFORMATION
  Report Type: 
  Country: None (occurrence: None)
  Receive Date: 20081007
  Receipt Date: 20080923
  Transmission Date: 20090506
  Serious: Yes (Hospitalization)
  Sender: FDA-Public Use
  Company Number: PHHY2008NO20634

PATIENT
  Sex: Female

DRUGS (13)
  1. CITALOPRAM HYDROBROMIDE [Suspect]
     Indication: DEPRESSION
     Dosage: 20 MG, QD
     Route: 048
     Dates: start: 20080311, end: 20080507
  2. SEROQUEL [Suspect]
     Indication: PSYCHOTIC DISORDER
     Dosage: 12.5 MG ONCE DAILY
     Route: 048
     Dates: start: 20080314
  3. SEROQUEL [Suspect]
     Indication: HALLUCINATION
     Dosage: 25 MG, QD
     Route: 048
     Dates: start: 20080326
  4. SEROQUEL [Suspect]
     Indication: ILLUSION
     Dosage: 50 MG, QD
     Route: 048
     Dates: start: 20080402
  5. SEROQUEL [Suspect]
     Dosage: 75 MG, QD
     Route: 048
     Dates: start: 20080404, end: 20080407
  6. SEROQUEL [Suspect]
     Dosage: 50MG + 75MG
     Route: 048
     Dates: start: 20080414
  7. SEROQUEL [Suspect]
     Dosage: 75MG + 75MG
     Route: 048
     Dates: start: 20080417
  8. SEROQUEL [Suspect]
     Dosage: 75MG + 100MG
     Route: 048
     Dates: start: 20080420
  9. SEROQUEL [Suspect]
     Dosage: 50MG + 50MG
     Route: 048
     Dates: start: 20080424
  10. SEROQUEL [Suspect]
     Dosage: UNK
  11. DIOVAN COMP [Concomitant]
     Dosage: 160/25 MG DAILY
     Route: 048
     Dates: end: 20080407
  12. ACETAMINOPHEN [Concomitant]
     Dosage: 1 G, QID
  13. SIMVASTATIN [Concomitant]
     Dosage: 40 MG DAILY

REACTIONS (4)
  - EATING DISORDER [None]
  - NAUSEA [None]
  - URINARY RETENTION [None]
  - VOMITING [None]
